FAERS Safety Report 20518711 (Version 1)
Quarter: 2022Q1

REPORT INFORMATION
  Report Type: Spontaneous
  Country: US (occurrence: None)
  Receive Date: 20220224
  Receipt Date: 20220224
  Transmission Date: 20220423
  Serious: Yes (Life-Threatening)
  Sender: FDA-Public Use
  Company Number: None

PATIENT
  Age: 79 Year
  Sex: Male
  Weight: 74.25 kg

DRUGS (7)
  1. AMOXICILLIN AND CLAVULANATE POTASSIUM [Suspect]
     Active Substance: AMOXICILLIN\CLAVULANATE POTASSIUM
     Indication: Oral disorder
     Dosage: OTHER QUANTITY : 2 TABLET(S);?FREQUENCY : EVERY 6 HOURS;?
     Route: 048
     Dates: start: 20220218, end: 20220222
  2. LOSARTAN [Concomitant]
     Active Substance: LOSARTAN
  3. GLIMEPIRIDE [Concomitant]
     Active Substance: GLIMEPIRIDE
  4. ASPIRIN LOW DOSE 81 MG [Concomitant]
  5. ATORVASTATIN [Concomitant]
     Active Substance: ATORVASTATIN
  6. SENTRY SENIOR VITAMIN SUPPLEMENTS [Concomitant]
  7. VITAMIN D3 [Concomitant]
     Active Substance: CHOLECALCIFEROL

REACTIONS (17)
  - Nasopharyngitis [None]
  - Cough [None]
  - Pyrexia [None]
  - Rhinorrhoea [None]
  - Chromaturia [None]
  - Gastrointestinal pain [None]
  - Multi-organ disorder [None]
  - Lung disorder [None]
  - Liver disorder [None]
  - Renal disorder [None]
  - Cardiac disorder [None]
  - Gastrointestinal disorder [None]
  - Toxicity to various agents [None]
  - Near death experience [None]
  - Weight decreased [None]
  - Back pain [None]
  - Neck pain [None]

NARRATIVE: CASE EVENT DATE: 20220217
